FAERS Safety Report 8180806-6 (Version None)
Quarter: 2012Q1

REPORT INFORMATION
  Report Type: 
  Country: None (occurrence: None)
  Receive Date: 20120301
  Receipt Date: 20120301
  Transmission Date: 20120608
  Serious: Yes (Hospitalization)
  Sender: FDA-Public Use
  Company Number: None

PATIENT
  Sex: Male
  Weight: 99.3 kg

DRUGS (2)
  1. CAMPATH [Suspect]
     Dosage: 30MG, QD, IV
     Route: 042
     Dates: start: 20081020
  2. CAMPATH [Suspect]
     Dosage: 30MG, QD, IV
     Route: 042
     Dates: start: 20081016

REACTIONS (4)
  - CELLULITIS [None]
  - SKIN DISCOLOURATION [None]
  - NECROSIS [None]
  - REFUSAL OF TREATMENT BY PATIENT [None]
